FAERS Safety Report 10048766 (Version 1)
Quarter: 2014Q1

REPORT INFORMATION
  Report Type: Spontaneous
  Country: US (occurrence: US)
  Receive Date: 20140331
  Receipt Date: 20140331
  Transmission Date: 20141002
  Serious: Yes (Hospitalization, Other)
  Sender: FDA-Public Use
  Company Number: US-ELI_LILLY_AND_COMPANY-US201403009153

PATIENT
  Age: 65 Year
  Sex: Male

DRUGS (9)
  1. AXIRON [Suspect]
     Indication: BLOOD TESTOSTERONE DECREASED
     Dosage: 60 MG, UNKNOWN
     Route: 065
     Dates: start: 201106
  2. CIALIS [Suspect]
     Indication: ERECTILE DYSFUNCTION
     Dosage: 20 MG, PRN
     Route: 065
  3. CIALIS [Suspect]
     Indication: BENIGN PROSTATIC HYPERPLASIA
     Dosage: 5 MG, QD
     Route: 065
     Dates: start: 20051026
  4. TRILIPIX [Concomitant]
  5. CELEBREX [Concomitant]
  6. JANUMET [Concomitant]
  7. NUCYNTA [Concomitant]
  8. SYNTHYROID [Concomitant]
  9. COUMADINE [Concomitant]

REACTIONS (1)
  - Respiratory failure [Unknown]
